FAERS Safety Report 10354549 (Version 2)
Quarter: 2014Q3

REPORT INFORMATION
  Report Type: Report from Study
  Country: US (occurrence: US)
  Receive Date: 20140731
  Receipt Date: 20140911
  Transmission Date: 20150326
  Serious: Yes (Other)
  Sender: FDA-Public Use
  Company Number: US-SA-2014SA099521

PATIENT
  Age: 80 Year
  Sex: Female
  Weight: 81 kg

DRUGS (2)
  1. SOLOSTAR [Concomitant]
     Active Substance: DEVICE
  2. LANTUS SOLOSTAR [Suspect]
     Active Substance: INSULIN GLARGINE
     Indication: DIABETES MELLITUS
     Dosage: DOSE:60 UNIT(S)
     Route: 065
     Dates: start: 2013

REACTIONS (4)
  - Eye haemorrhage [Unknown]
  - Eye swelling [Unknown]
  - Eye disorder [Unknown]
  - Blindness unilateral [Unknown]
